FAERS Safety Report 11365966 (Version 2)
Quarter: 2015Q3

REPORT INFORMATION
  Report Type: Spontaneous
  Country: FR (occurrence: FR)
  Receive Date: 20150811
  Receipt Date: 20150826
  Transmission Date: 20151125
  Serious: Yes (Other)
  Sender: FDA-Public Use
  Company Number: FR-PFIZER INC-2015260804

PATIENT
  Age: 53 Year
  Sex: Male

DRUGS (7)
  1. VIDEX [Concomitant]
     Active Substance: DIDANOSINE
     Dosage: UNK
     Dates: end: 20150614
  2. TRUVADA [Suspect]
     Active Substance: EMTRICITABINE\TENOFOVIR DISOPROXIL FUMARATE
     Dosage: 1 DF (200MG/245MG), 1X/DAY
     Route: 048
     Dates: start: 20150615
  3. KALETRA [Concomitant]
     Active Substance: LOPINAVIR\RITONAVIR
     Dosage: UNK
     Dates: end: 20150614
  4. SUSTIVA [Concomitant]
     Active Substance: EFAVIRENZ
     Dosage: 600 MG, 1X/DAY
     Route: 048
     Dates: end: 20150614
  5. LYRICA [Suspect]
     Active Substance: PREGABALIN
     Dosage: UNK
     Route: 048
     Dates: start: 20150609
  6. TRAMADOL HYDROCHLORIDE. [Suspect]
     Active Substance: TRAMADOL HYDROCHLORIDE
     Dosage: UNK
     Route: 048
     Dates: start: 20150614
  7. TIVICAY [Suspect]
     Active Substance: DOLUTEGRAVIR SODIUM
     Dosage: 50 MG, 1X/DAY
     Route: 048
     Dates: start: 20150615

REACTIONS (3)
  - Suicidal ideation [Recovering/Resolving]
  - Panic attack [Recovering/Resolving]
  - Depression [Recovering/Resolving]

NARRATIVE: CASE EVENT DATE: 20150616
